FAERS Safety Report 7666960-0 (Version None)
Quarter: 2011Q3

REPORT INFORMATION
  Report Type: 
  Country: None (occurrence: None)
  Receive Date: 20110806
  Receipt Date: 20110719
  Transmission Date: 20111222
  Serious: No
  Sender: FDA-Public Use
  Company Number: US-ABBOTT-11P-163-0840536-00

PATIENT
  Sex: Male

DRUGS (5)
  1. NIASPAN [Suspect]
     Indication: HIGH DENSITY LIPOPROTEIN DECREASED
     Dates: start: 20110601
  2. LIVALO [Concomitant]
     Indication: BLOOD CHOLESTEROL INCREASED
  3. ASPIRIN [Concomitant]
     Indication: FLUSHING
  4. TRICOR [Concomitant]
     Indication: BLOOD CHOLESTEROL INCREASED
  5. ASPIRIN [Concomitant]
     Indication: PROPHYLAXIS

REACTIONS (2)
  - HOT FLUSH [None]
  - PAIN [None]
